FAERS Safety Report 11570301 (Version 1)
Quarter: 2015Q3

REPORT INFORMATION
  Report Type: Spontaneous
  Country: US (occurrence: None)
  Receive Date: 20150928
  Receipt Date: 20150928
  Transmission Date: 20151125
  Serious: Yes (Other)
  Sender: FDA-Public Use
  Company Number: None

PATIENT
  Age: 28 Year
  Sex: Female
  Weight: 50 kg

DRUGS (3)
  1. AMOX CLAV 875MG [Suspect]
     Active Substance: AMOXICILLIN\CLAVULANATE POTASSIUM
     Indication: PYREXIA
     Dosage: 14 PILLS
     Route: 048
  2. CLOBETASOL PROPIONATE CREAM [Concomitant]
     Active Substance: CLOBETASOL PROPIONATE
  3. AMOX CLAV 875MG [Suspect]
     Active Substance: AMOXICILLIN\CLAVULANATE POTASSIUM
     Indication: CAESAREAN SECTION
     Dosage: 14 PILLS
     Route: 048

REACTIONS (2)
  - Pruritus [None]
  - Rash [None]

NARRATIVE: CASE EVENT DATE: 20150913
